FAERS Safety Report 13078779 (Version 3)
Quarter: 2017Q1

REPORT INFORMATION
  Report Type: Spontaneous
  Country: US (occurrence: US)
  Receive Date: 20170102
  Receipt Date: 20170215
  Transmission Date: 20170428
  Serious: No
  Sender: FDA-Public Use
  Company Number: US-ASTRAZENECA-2016SF36084

PATIENT
  Age: 82 Year
  Sex: Male
  Weight: 68 kg

DRUGS (16)
  1. SYMBICORT [Suspect]
     Active Substance: BUDESONIDE\FORMOTEROL FUMARATE DIHYDRATE
     Indication: ASTHMA
     Dosage: 160/4.5MCG, 2 PUFFS TWICE DAILY
     Route: 055
     Dates: start: 201611
  2. LEVAQUIN [Concomitant]
     Active Substance: LEVOFLOXACIN
  3. LOSARTAN POTASSIUM. [Concomitant]
     Active Substance: LOSARTAN POTASSIUM
     Route: 048
  4. SPIRONOLACTONE. [Concomitant]
     Active Substance: SPIRONOLACTONE
     Route: 048
  5. BUMETANIDE. [Concomitant]
     Active Substance: BUMETANIDE
     Route: 048
  6. OMEPRAZOLE. [Concomitant]
     Active Substance: OMEPRAZOLE
     Route: 048
  7. TAMSULOSIN HCL [Concomitant]
     Active Substance: TAMSULOSIN
     Route: 048
  8. PERFOROMIST [Concomitant]
     Active Substance: FORMOTEROL FUMARATE DIHYDRATE
     Dosage: 20 MCG/2 ML, BID
     Dates: start: 20160324
  9. ADVAIR DISKUS [Concomitant]
     Active Substance: FLUTICASONE PROPIONATE\SALMETEROL XINAFOATE
     Dosage: 250-50 MCG /DOSE , INHALATION TWO TIMES DAILY
     Dates: start: 20161111
  10. IPRATROPIUM-ABLUTEROL [Concomitant]
     Dosage: 0.5-2.5MG/3 ML, INHALATION FOUR TIMES DAILY
     Dates: start: 20160324
  11. HYDROCODONE -ACETAMINOPHEN [Concomitant]
     Dosage: 5-325 MG
     Route: 048
  12. CARVEDILOL. [Concomitant]
     Active Substance: CARVEDILOL
     Route: 048
  13. PULMICORT TURBUHALER [Concomitant]
     Active Substance: BUDESONIDE
     Dosage: 0.5 MG/2 ML , TWO TIMES DAILY
     Dates: start: 20160324
  14. IPRATROPIUM BROMIDE. [Concomitant]
     Active Substance: IPRATROPIUM BROMIDE
     Dosage: 0.2 % SOLUTION, TWO TIMES DAILY
     Dates: start: 20160324
  15. PROAIR HFA [Concomitant]
     Active Substance: ALBUTEROL SULFATE
     Dosage: AS NEEDED
     Dates: start: 20160602
  16. SINGULAIR [Concomitant]
     Active Substance: MONTELUKAST SODIUM
     Route: 048
     Dates: start: 20160718

REACTIONS (13)
  - Upper-airway cough syndrome [Unknown]
  - Excessive cerumen production [Unknown]
  - Arthralgia [Unknown]
  - Oropharyngeal pain [Unknown]
  - Dyspnoea [Unknown]
  - Cough [Unknown]
  - Sinusitis [Unknown]
  - Joint stiffness [Unknown]
  - Dysphonia [Unknown]
  - Candida infection [Unknown]
  - Device malfunction [Unknown]
  - Underdose [Unknown]
  - Hypoaesthesia [Unknown]

NARRATIVE: CASE EVENT DATE: 2016
